FAERS Safety Report 5787403-8 (Version None)
Quarter: 2008Q2

REPORT INFORMATION
  Report Type: 
  Country: None (occurrence: None)
  Receive Date: 20080625
  Receipt Date: 20080623
  Transmission Date: 20081010
  Serious: Yes (Death)
  Sender: FDA-Public Use
  Company Number: US-WYE-H03818408

PATIENT
  Sex: Male
  Weight: 93.07 kg

DRUGS (3)
  1. ZOSYN [Suspect]
     Indication: PNEUMONIA
     Dosage: 4.5 G DAILY
     Route: 042
     Dates: start: 20080224, end: 20080224
  2. CORGARD [Concomitant]
     Dosage: UNKNOWN
  3. COZAAR [Concomitant]
     Dosage: UNKNOWN

REACTIONS (2)
  - ANAPHYLACTIC SHOCK [None]
  - CARDIAC ARREST [None]
